FAERS Safety Report 9788596 (Version 1)
Quarter: 2013Q4

REPORT INFORMATION
  Report Type: Spontaneous
  Country: CN (occurrence: CN)
  Receive Date: 20131230
  Receipt Date: 20131230
  Transmission Date: 20140711
  Serious: Yes (Other)
  Sender: FDA-Public Use
  Company Number: CN-BAYER-2013-155526

PATIENT
  Age: 33 Year
  Sex: Male

DRUGS (7)
  1. SORAFENIB (RAF KINASE INHIBITOR) [Suspect]
     Indication: HEPATOCELLULAR CARCINOMA
     Dosage: 400 MG, UNK
  2. EPIRUBICIN [Concomitant]
     Indication: HEPATOCELLULAR CARCINOMA
     Dosage: 50 MG, ONCE
  3. EPIRUBICIN [Concomitant]
     Indication: THERAPEUTIC EMBOLISATION
     Dosage: 50 MG, ONCE
  4. LIPIODOL ULTRA-FLUIDE [Concomitant]
     Indication: THERAPEUTIC EMBOLISATION
     Dosage: 10 ML, ONCE
  5. LIPIODOL ULTRA-FLUIDE [Concomitant]
     Indication: HEPATOCELLULAR CARCINOMA
     Dosage: 10 ML, ONCE
  6. GELFOAM [Concomitant]
     Indication: THERAPEUTIC EMBOLISATION
     Dosage: UNK UNK, ONCE
  7. GELFOAM [Concomitant]
     Indication: HEPATOCELLULAR CARCINOMA
     Dosage: UNK UNK, ONCE

REACTIONS (5)
  - Hepatic function abnormal [None]
  - Hepatocellular carcinoma [None]
  - Palmar-plantar erythrodysaesthesia syndrome [Recovering/Resolving]
  - Alopecia [Recovering/Resolving]
  - Tinnitus [Recovering/Resolving]
